FAERS Safety Report 6025727-X (Version None)
Quarter: 2008Q4

REPORT INFORMATION
  Report Type: 
  Country: None (occurrence: None)
  Receive Date: 20081231
  Receipt Date: 20081222
  Transmission Date: 20090506
  Serious: Yes (Hospitalization)
  Sender: FDA-Public Use
  Company Number: DE-ABBOTT-08P-062-0494049-00

PATIENT
  Sex: Female

DRUGS (3)
  1. HUMIRA [Suspect]
     Indication: DRUG USE FOR UNKNOWN INDICATION
     Route: 058
     Dates: start: 20031002, end: 20081112
  2. ANTI-THROMBOSIS INJECTION [Concomitant]
     Indication: ANTICOAGULANT THERAPY
     Route: 050
  3. IBUPROFEN TABLETS [Concomitant]
     Indication: RHEUMATOID ARTHRITIS

REACTIONS (1)
  - ARTHRODESIS [None]
